FAERS Safety Report 7584579-7 (Version None)
Quarter: 2011Q2

REPORT INFORMATION
  Report Type: 
  Country: None (occurrence: None)
  Receive Date: 20110630
  Receipt Date: 20110621
  Transmission Date: 20111010
  Serious: Yes (Other)
  Sender: FDA-Public Use
  Company Number: US-ELI_LILLY_AND_COMPANY-US201010006773

PATIENT
  Sex: Female

DRUGS (12)
  1. ANTIHYPERTENSIVES [Concomitant]
     Indication: HYPERTENSION
  2. SULFASALAZINE [Concomitant]
     Dosage: 500 MG, BID
  3. CYMBALTA [Suspect]
  4. NEXIUM [Concomitant]
  5. DILTIAZEM [Concomitant]
     Dosage: 60 MG, TID
  6. FORTEO [Suspect]
     Dosage: 20 UG, QD
     Route: 065
  7. METHOTREXATE [Concomitant]
     Dosage: 25 MG, UNK
  8. LYRICA [Concomitant]
  9. LABETALOL HCL [Concomitant]
     Dosage: 200 MG, BID
  10. FORTEO [Suspect]
     Indication: OSTEOPOROSIS
     Dosage: 20 UG, QD
     Route: 065
     Dates: start: 20090901
  11. CENTRUM [Concomitant]
  12. TRAMADOL HCL [Concomitant]

REACTIONS (9)
  - FALL [None]
  - CONTUSION [None]
  - ASTHENIA [None]
  - FRACTURED SACRUM [None]
  - DIZZINESS [None]
  - LOSS OF CONSCIOUSNESS [None]
  - HYPERTENSION [None]
  - ERYTHEMA [None]
  - PAIN [None]
